FAERS Safety Report 4596769-6 (Version None)
Quarter: 2005Q1

REPORT INFORMATION
  Report Type: 
  Country: None (occurrence: None)
  Receive Date: 20050228
  Receipt Date: 20040406
  Transmission Date: 20050727
  Serious: Yes (Death)
  Sender: FDA-Public Use
  Company Number: 7843

PATIENT
  Age: 68 Year
  Sex: Female

DRUGS (6)
  1. METHOTREXATE [Suspect]
     Indication: RHEUMATOID ARTHRITIS
     Dosage: 6 MG WEEKLY
     Route: 048
     Dates: start: 20010501, end: 20040215
  2. TRICHLORMETHIAZIDE [Concomitant]
  3. SPIRONOLACTONE [Concomitant]
  4. ISOSORBIDE DINITRATE [Concomitant]
  5. FUROSEMIDE [Concomitant]
  6. PREDNISOLONE [Concomitant]

REACTIONS (7)
  - ANURIA [None]
  - CARDIAC FAILURE CONGESTIVE [None]
  - CARDIO-RESPIRATORY ARREST [None]
  - MULTI-ORGAN FAILURE [None]
  - PANCYTOPENIA [None]
  - PNEUMONIA [None]
  - SPINAL COMPRESSION FRACTURE [None]
